FAERS Safety Report 5117510-4 (Version None)
Quarter: 2006Q3

REPORT INFORMATION
  Report Type: 
  Country: None (occurrence: None)
  Receive Date: 20060929
  Receipt Date: 20050824
  Transmission Date: 20061208
  Serious: Yes (Death, Hospitalization)
  Sender: FDA-Public Use
  Company Number: DE-ROCHE-415517

PATIENT
  Age: 59 Year
  Sex: Female

DRUGS (65)
  1. ZENAPAX [Suspect]
     Route: 042
     Dates: start: 20050809, end: 20050809
  2. ZENAPAX [Suspect]
     Route: 042
     Dates: start: 20050815, end: 20050815
  3. MYCOPHENOLATE MOFETIL [Suspect]
     Route: 042
     Dates: start: 20050808, end: 20050909
  4. TACROLIMUS [Suspect]
     Dosage: DOSE ADJUSTED TO REACH PREDEFINED TARGET LEVELS.
     Route: 048
     Dates: start: 20050813
  5. METHYLPREDNISOLONE [Suspect]
     Route: 065
     Dates: start: 20050808
  6. PREDNISONE TAB [Suspect]
     Dosage: TAPERED BACK TO MAINTENANCE AFTER TREATMENT OF REJECTION.
     Route: 065
     Dates: start: 20050809
  7. NOREPINEPHRINE HCL [Concomitant]
     Dates: start: 20050808
  8. ANTITHROMBIN III [Concomitant]
     Dates: start: 20050809, end: 20050910
  9. TRIMETHOPRIM/SULFAMETHOXAZOLE FORTE [Concomitant]
     Dates: start: 20050809
  10. METOPROLOL SUCCINATE [Concomitant]
     Dates: start: 20050813
  11. CALCIUM GLUCONATE [Concomitant]
     Dates: start: 20050809, end: 20050817
  12. CASPOFUNGIN [Concomitant]
     Dates: start: 20050822
  13. TPN ELECTROLYTES IN PLASTIC CONTAINER [Concomitant]
     Dates: start: 20050809
  14. GANCICLOVIR [Concomitant]
     Dates: start: 20050809
  15. PIRITRAMID [Concomitant]
     Dates: start: 20050814, end: 20050910
  16. DOPAMIN [Concomitant]
     Dates: start: 20050811, end: 20050815
  17. BLOOD, PACKED RED CELLS [Concomitant]
     Dates: start: 20050808, end: 20050910
  18. FIBRINOGEN [Concomitant]
     Dates: start: 20050808, end: 20050820
  19. HAES [Concomitant]
     Dates: start: 20050808, end: 20050910
  20. HEPARIN [Concomitant]
     Dates: start: 20050811
  21. LACTULOSE [Concomitant]
     Dates: start: 20050824, end: 20050901
  22. ALBUMIN (HUMAN) [Concomitant]
     Dates: start: 20050808, end: 20050904
  23. NPH INSULIN [Concomitant]
     Dates: start: 20050809
  24. POTASSIUM CHLORIDE [Concomitant]
     Dates: start: 20050816, end: 20050907
  25. GRANISETRON HCL [Concomitant]
     Dates: start: 20050819, end: 20050908
  26. L-THYROXIN [Concomitant]
     Dates: start: 20050811
  27. FUROSEMIDE [Concomitant]
     Dates: start: 20050809, end: 20050816
  28. METOCLOPRAMIDE HCL [Concomitant]
     Dates: start: 20050814, end: 20050908
  29. MAGNESIUM [Concomitant]
     Dates: start: 20050809, end: 20050820
  30. NYSTATIN [Concomitant]
     Dates: start: 20050809
  31. 1 CONCOMITANT DRUG [Concomitant]
     Dosage: REPORTED AS AMBRAXOL
     Dates: start: 20060808
  32. NACL [Concomitant]
     Dates: start: 20050815
  33. METAMIZOL [Concomitant]
     Dates: start: 20050809, end: 20050809
  34. NATRIUMPHOSPHAT [Concomitant]
     Dates: start: 20050809, end: 20050906
  35. SPIROLACTONE [Concomitant]
     Dates: start: 20050809, end: 20050811
  36. PANTOPRAZOL [Concomitant]
     Dates: start: 20050808
  37. PARACETAMOL [Concomitant]
     Dates: start: 20050817, end: 20050901
  38. PPSB [Concomitant]
     Dates: start: 20050808, end: 20050810
  39. RANITIDINE [Concomitant]
     Dates: start: 20050815, end: 20050817
  40. RINGER'S IRRIGATION [Concomitant]
     Dates: start: 20050813, end: 20050824
  41. LEVOFLOXACINE [Concomitant]
     Dates: start: 20050810, end: 20050901
  42. APROTININ [Concomitant]
     Dates: start: 20050808, end: 20050910
  43. TORSEMIDE [Concomitant]
     Dates: start: 20050809, end: 20050817
  44. MUPIROCIN [Concomitant]
     Dates: start: 20050808
  45. IMIPENEM [Concomitant]
     Dates: start: 20050808, end: 20050819
  46. TEICOPLANIN [Concomitant]
     Dates: start: 20050810, end: 20050921
  47. CERULETID [Concomitant]
     Dates: start: 20050825, end: 20050825
  48. AMINO ACID INJ [Concomitant]
     Dates: start: 20050823
  49. NEOSTIGMINE METHYLSULPHATE [Concomitant]
     Dates: start: 20050811, end: 20050830
  50. SELENIUM SULFIDE [Concomitant]
     Dates: start: 20050826, end: 20050826
  51. PLATELETS [Concomitant]
     Dates: start: 20050810, end: 20050910
  52. VASOPRESSIN INJECTION [Concomitant]
     Dates: start: 20050810, end: 20050812
  53. CERNEVIT-12 [Concomitant]
     Dates: start: 20050809, end: 20050928
  54. PROPOFOL [Concomitant]
     Dates: start: 20050808, end: 20050910
  55. FACTOR XIII [Concomitant]
     Dates: start: 20050821, end: 20050821
  56. FRESH FROZEN PLASMA [Concomitant]
     Dates: start: 20050910, end: 20050910
  57. TPN [Concomitant]
     Dates: start: 20050809, end: 20050909
  58. POTASSIUM [Concomitant]
     Dates: start: 20050904, end: 20050904
  59. POTASSIUM CHLORIDE [Concomitant]
     Dates: start: 20050808, end: 20050910
  60. PHYTOMENADION [Concomitant]
     Dates: start: 20050830, end: 20050906
  61. GLYCEROLTRINITRAT [Concomitant]
     Dates: start: 20050817, end: 20050831
  62. NORMOFUNDIN [Concomitant]
     Dates: start: 20050808, end: 20050824
  63. OSYROL LASIX [Concomitant]
     Dates: start: 20050809, end: 20050811
  64. CLEMASTIN [Concomitant]
     Dates: start: 20050814, end: 20050817
  65. OMEGAVEN [Concomitant]
     Dates: start: 20050815, end: 20050913

REACTIONS (13)
  - ABDOMINAL INFECTION [None]
  - ASPERGILLOSIS [None]
  - BONE MARROW FAILURE [None]
  - CANDIDIASIS [None]
  - ENTEROCOCCAL INFECTION [None]
  - FUNGAL INFECTION [None]
  - HAEMATOMA INFECTION [None]
  - HEPATIC FAILURE [None]
  - RENAL FAILURE [None]
  - SEPSIS [None]
  - SEPTIC SHOCK [None]
  - WOUND DEHISCENCE [None]
  - WOUND SECRETION [None]
